FAERS Safety Report 13296093 (Version 3)
Quarter: 2017Q1

REPORT INFORMATION
  Report Type: Spontaneous
  Country: US (occurrence: US)
  Receive Date: 20170304
  Receipt Date: 20170329
  Transmission Date: 20170428
  Serious: Yes (Other)
  Sender: FDA-Public Use
  Company Number: US-SUN PHARMACEUTICAL INDUSTRIES LTD-2017US-134984

PATIENT
  Sex: Male

DRUGS (2)
  1. OXYCODONE [Suspect]
     Active Substance: OXYCODONE
     Indication: PAIN
     Dosage: 1 DF, QID
     Route: 065
  2. OXYCODONE [Suspect]
     Active Substance: OXYCODONE
     Indication: CRANIAL NERVE INJURY

REACTIONS (12)
  - Memory impairment [Unknown]
  - Abdominal discomfort [Unknown]
  - Product substitution issue [Unknown]
  - Lethargy [Unknown]
  - Anxiety [Unknown]
  - Confusional state [Unknown]
  - Therapeutic response decreased [Unknown]
  - Fatigue [Unknown]
  - Intentional overdose [Unknown]
  - Malaise [Unknown]
  - Chronic gastritis [Unknown]
  - Constipation [Unknown]
